FAERS Safety Report 7481795-X (Version None)
Quarter: 2011Q2

REPORT INFORMATION
  Report Type: 
  Country: None (occurrence: None)
  Receive Date: 20110506
  Receipt Date: 20110427
  Transmission Date: 20111010
  Serious: Yes (Hospitalization)
  Sender: FDA-Public Use
  Company Number: DKLU1070206

PATIENT
  Age: 14 Year
  Sex: Male

DRUGS (1)
  1. CHEMET [Suspect]
     Indication: METAL POISONING
     Dosage: 2 CAPSULES MWF X 6 WEEKS, ORAL
     Route: 048

REACTIONS (5)
  - ABDOMINAL PAIN UPPER [None]
  - BRONCHITIS [None]
  - ARTHRALGIA [None]
  - NECK PAIN [None]
  - SINUS CONGESTION [None]
